FAERS Safety Report 8991316 (Version 1)
Quarter: 2012Q4

REPORT INFORMATION
  Report Type: Report from Study
  Country: GB (occurrence: GB)
  Receive Date: 20121231
  Receipt Date: 20121231
  Transmission Date: 20130627
  Serious: Yes (Other)
  Sender: FDA-Public Use
  Company Number: GB-ROCHE-1172725

PATIENT
  Sex: Female

DRUGS (5)
  1. BEVACIZUMAB [Suspect]
     Indication: MALIGNANT MELANOMA
     Dosage: Last dose was on 24/Mar/2009 was of 562.5 mg
     Route: 042
     Dates: start: 20090324
  2. MULTIVITAMIN [Concomitant]
     Route: 065
     Dates: start: 200708
  3. VITAMIN D [Concomitant]
     Route: 065
     Dates: start: 200708
  4. FISH OIL [Concomitant]
     Route: 065
     Dates: start: 200708
  5. VITAMIN C [Concomitant]
     Route: 065
     Dates: start: 200708

REACTIONS (1)
  - Menstruation irregular [Not Recovered/Not Resolved]
